FAERS Safety Report 9278232 (Version 2)
Quarter: 2013Q4

REPORT INFORMATION
  Report Type: Spontaneous
  Country: DE (occurrence: DE)
  Receive Date: 20130508
  Receipt Date: 20131017
  Transmission Date: 20140711
  Serious: Yes (Hospitalization)
  Sender: FDA-Public Use
  Company Number: DE-SANOFI-AVENTIS-2013SA046218

PATIENT
  Age: 62 Year
  Sex: Female
  Weight: 50 kg

DRUGS (12)
  1. ZALTRAP [Suspect]
     Indication: METASTATIC NEOPLASM
     Route: 042
     Dates: start: 20130321, end: 20130321
  2. ZALTRAP [Suspect]
     Indication: METASTATIC NEOPLASM
     Route: 042
     Dates: start: 20130411, end: 20130411
  3. ZALTRAP [Suspect]
     Indication: METASTATIC NEOPLASM
     Route: 042
     Dates: start: 20130425, end: 20130425
  4. IRINOTECAN [Concomitant]
     Indication: METASTATIC NEOPLASM
     Route: 042
     Dates: start: 20130321, end: 20130321
  5. IRINOTECAN [Concomitant]
     Indication: METASTATIC NEOPLASM
     Route: 042
     Dates: start: 20130411, end: 20130411
  6. IRINOTECAN [Concomitant]
     Indication: METASTATIC NEOPLASM
     Route: 042
     Dates: start: 20130425, end: 20130425
  7. LEUCOVORIN [Concomitant]
     Indication: METASTATIC NEOPLASM
     Route: 042
     Dates: start: 20130321, end: 20130321
  8. LEUCOVORIN [Concomitant]
     Indication: METASTATIC NEOPLASM
     Route: 042
     Dates: start: 20130411, end: 20130411
  9. LEUCOVORIN [Concomitant]
     Indication: METASTATIC NEOPLASM
     Route: 042
     Dates: start: 20130425, end: 20130425
  10. 5 FU [Concomitant]
     Indication: METASTATIC NEOPLASM
     Route: 042
     Dates: start: 20130321, end: 20130321
  11. 5 FU [Concomitant]
     Indication: METASTATIC NEOPLASM
     Route: 042
     Dates: start: 20130411, end: 20130411
  12. 5 FU [Concomitant]
     Indication: METASTATIC NEOPLASM
     Route: 042
     Dates: start: 20130425, end: 20130425

REACTIONS (4)
  - Colitis [Recovering/Resolving]
  - General physical health deterioration [Recovering/Resolving]
  - Diarrhoea haemorrhagic [Recovering/Resolving]
  - Haemorrhage [Recovering/Resolving]
